FAERS Safety Report 23559619 (Version 1)
Quarter: 2024Q1

REPORT INFORMATION
  Report Type: Report from Study
  Country: US (occurrence: US)
  Receive Date: 20240223
  Receipt Date: 20240223
  Transmission Date: 20240409
  Serious: Yes (Other)
  Sender: FDA-Public Use
  Company Number: US-Eisai-EC-2024-159945

PATIENT
  Age: 61 Year
  Sex: Male

DRUGS (4)
  1. LENVIMA [Suspect]
     Active Substance: LENVATINIB
     Indication: Product used for unknown indication
     Dosage: DOSE  AND FREQUENCY UNKNOWN
     Route: 048
  2. FOTIVDA [Suspect]
     Active Substance: TIVOZANIB HYDROCHLORIDE
     Indication: Product used for unknown indication
     Dosage: DOSE  AND FREQUENCY UNKNOWN
     Route: 065
  3. VOTRIENT [Suspect]
     Active Substance: PAZOPANIB HYDROCHLORIDE
     Indication: Product used for unknown indication
     Dosage: DOSE  AND FREQUENCY UNKNOWN
     Route: 065
  4. KEYTRUDA [Suspect]
     Active Substance: PEMBROLIZUMAB
     Indication: Product used for unknown indication
     Dosage: DOSE  AND FREQUENCY UNKNOWN
     Route: 042

REACTIONS (1)
  - Intestinal perforation [Unknown]
